FAERS Safety Report 9808129 (Version 1)
Quarter: 2014Q1

REPORT INFORMATION
  Report Type: Spontaneous
  Country: FR (occurrence: None)
  Receive Date: 20140108
  Receipt Date: 20140108
  Transmission Date: 20141002
  Serious: Yes (Disabling)
  Sender: FDA-Public Use
  Company Number: FR-2013-4367

PATIENT
  Age: 58 Year
  Sex: Female

DRUGS (2)
  1. NAVELBINE [Suspect]
     Indication: BREAST CANCER
     Dosage: CYCLIC ON DAY 1 AND DAY 5
     Route: 042
  2. 5 FU [Suspect]
     Indication: BREAST CANCER
     Dosage: CYCLICAL, DAY 1 AND DAY 5.
     Route: 042

REACTIONS (1)
  - Hemiplegia [None]
